FAERS Safety Report 6371506-3 (Version None)
Quarter: 2009Q3

REPORT INFORMATION
  Report Type: 
  Country: None (occurrence: None)
  Receive Date: 20090923
  Receipt Date: 20070820
  Transmission Date: 20100115
  Serious: Yes (Other)
  Sender: FDA-Public Use
  Company Number: US-ASTRAZENECA-2007UW15963

PATIENT
  Age: 18214 Day
  Sex: Female
  Weight: 74.4 kg

DRUGS (26)
  1. SEROQUEL [Suspect]
     Indication: BIPOLAR DISORDER
     Dosage: 25 MG - 200 MG
     Route: 048
     Dates: start: 20031104, end: 20061116
  2. SEROQUEL [Suspect]
     Indication: DEPRESSION
     Dosage: 25 MG - 200 MG
     Route: 048
     Dates: start: 20031104, end: 20061116
  3. SEROQUEL [Suspect]
     Indication: SLEEP DISORDER
     Dosage: 25 MG - 200 MG
     Route: 048
     Dates: start: 20031104, end: 20061116
  4. SEROQUEL [Suspect]
     Indication: MORBID THOUGHTS
     Dosage: 25 MG - 200 MG
     Route: 048
     Dates: start: 20031104, end: 20061116
  5. SEROQUEL [Suspect]
     Indication: ANXIETY
     Dosage: 25 MG - 200 MG
     Route: 048
     Dates: start: 20031104, end: 20061116
  6. SEROQUEL [Suspect]
     Dosage: 25-100  MG
     Route: 048
     Dates: start: 20031104
  7. SEROQUEL [Suspect]
     Dosage: 25-100  MG
     Route: 048
     Dates: start: 20031104
  8. SEROQUEL [Suspect]
     Dosage: 25-100  MG
     Route: 048
     Dates: start: 20031104
  9. SEROQUEL [Suspect]
     Dosage: 25-100  MG
     Route: 048
     Dates: start: 20031104
  10. SEROQUEL [Suspect]
     Dosage: 25-100  MG
     Route: 048
     Dates: start: 20031104
  11. ABILIFY [Concomitant]
     Route: 065
     Dates: start: 20060101, end: 20060101
  12. ZYPREXA [Concomitant]
     Route: 065
     Dates: start: 20020101, end: 20030101
  13. PAXIL [Concomitant]
     Route: 065
     Dates: start: 19980101
  14. LITHIUM [Concomitant]
     Route: 065
     Dates: start: 20020101
  15. CLONAZEPAM [Concomitant]
     Route: 048
  16. LAMOTRIGINE [Concomitant]
     Dosage: 25-100 MG
     Route: 048
  17. OMEPRAZOLE [Concomitant]
     Route: 048
  18. ESCITALOPRAM [Concomitant]
     Route: 048
  19. SUMATRIPTAN SUCCINATE [Concomitant]
     Route: 023
  20. ZANTAC [Concomitant]
     Route: 048
  21. BUTAL/APAP/CAFFEINE [Concomitant]
     Dosage: 50/325/40 MG
     Route: 048
  22. CALCIUM CITRATE [Concomitant]
     Route: 048
  23. BENZTROPINE MESYLATE [Concomitant]
     Dosage: 0.5-2 MG
     Route: 048
  24. MOTRIN [Concomitant]
     Dosage: 200-800 MG
     Route: 048
  25. SIMVASTATIN [Concomitant]
     Route: 048
  26. RESTORIL [Concomitant]
     Dosage: 15-30 MG
     Route: 048

REACTIONS (24)
  - ARTHRALGIA [None]
  - BIPOLAR DISORDER [None]
  - BLOOD CHOLESTEROL INCREASED [None]
  - BREAST ABSCESS [None]
  - BREAST CYST [None]
  - BREAST PAIN [None]
  - DERMAL CYST [None]
  - GASTROOESOPHAGEAL REFLUX DISEASE [None]
  - HEADACHE [None]
  - HELICOBACTER GASTRITIS [None]
  - HYPOAESTHESIA [None]
  - MUSCLE SPASMS [None]
  - NIGHTMARE [None]
  - OSTEOARTHRITIS [None]
  - PAIN IN EXTREMITY [None]
  - PANIC DISORDER WITH AGORAPHOBIA [None]
  - PARONYCHIA [None]
  - SINUSITIS [None]
  - SLEEP DISORDER [None]
  - SUBCUTANEOUS HAEMATOMA [None]
  - SUICIDAL IDEATION [None]
  - TENDERNESS [None]
  - TYPE 2 DIABETES MELLITUS [None]
  - WEIGHT INCREASED [None]
